FAERS Safety Report 15278376 (Version 1)
Quarter: 2018Q3

REPORT INFORMATION
  Report Type: Spontaneous
  Country: JP (occurrence: JP)
  Receive Date: 20180814
  Receipt Date: 20180814
  Transmission Date: 20181010
  Serious: Yes (Other)
  Sender: FDA-Public Use
  Company Number: PHHY2018JP068857

PATIENT
  Age: 45 Year
  Sex: Male

DRUGS (2)
  1. ENALAPRIL [Suspect]
     Active Substance: ENALAPRIL
     Indication: CARDIAC DYSFUNCTION
     Dosage: 10 MG, QD
     Route: 065
  2. CARVEDILOL. [Suspect]
     Active Substance: CARVEDILOL
     Indication: CARDIAC DYSFUNCTION
     Dosage: 10 MG, QD
     Route: 065

REACTIONS (4)
  - Ventricular tachycardia [Unknown]
  - Cardiac failure [Not Recovered/Not Resolved]
  - Cardiopulmonary failure [Unknown]
  - Therapeutic response decreased [Unknown]
